FAERS Safety Report 5014712-2 (Version None)
Quarter: 2006Q2

REPORT INFORMATION
  Report Type: 
  Country: None (occurrence: None)
  Receive Date: 20060531
  Receipt Date: 20060518
  Transmission Date: 20061013
  Serious: Yes (Hospitalization, Other)
  Sender: FDA-Public Use
  Company Number: US-GLAXOSMITHKLINE-A0606228A

PATIENT
  Sex: Male

DRUGS (6)
  1. LAMICTAL [Suspect]
     Indication: BIPOLAR DISORDER
     Route: 048
  2. CLOZARIL [Concomitant]
  3. LORAZEPAM [Concomitant]
  4. ZOLOFT [Concomitant]
  5. OXYCONTIN [Concomitant]
  6. SYNTHROID [Concomitant]

REACTIONS (5)
  - BLOOD CREATINE PHOSPHOKINASE INCREASED [None]
  - DRUG EFFECT DECREASED [None]
  - MENTAL IMPAIRMENT [None]
  - PRESCRIBED OVERDOSE [None]
  - RHABDOMYOLYSIS [None]
